FAERS Safety Report 6724325-X (Version None)
Quarter: 2010Q2

REPORT INFORMATION
  Report Type: 
  Country: None (occurrence: None)
  Receive Date: 20100513
  Receipt Date: 20100501
  Transmission Date: 20101027
  Serious: Yes (Other)
  Sender: FDA-Public Use
  Company Number: ES-CELGENEUS-144-50794-10040970

PATIENT
  Age: 63 Year
  Sex: Female

DRUGS (3)
  1. VIDAZA [Suspect]
     Route: 058
     Dates: start: 20090914, end: 20100411
  2. LAXATIVES [Concomitant]
     Indication: CONSTIPATION
     Route: 065
  3. HERBAL [Concomitant]
     Indication: DRUG USE FOR UNKNOWN INDICATION
     Route: 065

REACTIONS (1)
  - COLITIS ISCHAEMIC [None]
